FAERS Safety Report 18090698 (Version 1)
Quarter: 2020Q3

REPORT INFORMATION
  Report Type: Spontaneous
  Country: US (occurrence: US)
  Receive Date: 20200730
  Receipt Date: 20200730
  Transmission Date: 20201103
  Serious: Yes (Other)
  Sender: FDA-Public Use
  Company Number: US-AUROBINDO-AUR-APL-2019-056878

PATIENT

DRUGS (1)
  1. ALPRAZOLAM EXTENDED?RELEASE TABLETS [Suspect]
     Active Substance: ALPRAZOLAM
     Indication: PRODUCT USED FOR UNKNOWN INDICATION
     Dosage: UNK, FOR THE PAST 05 YEARS
     Route: 065

REACTIONS (1)
  - Liver injury [Unknown]
